FAERS Safety Report 7084741-6 (Version None)
Quarter: 2010Q4

REPORT INFORMATION
  Report Type: 
  Country: None (occurrence: None)
  Receive Date: 20101104
  Receipt Date: 20101027
  Transmission Date: 20110411
  Serious: Yes (Other)
  Sender: FDA-Public Use
  Company Number: US-GILEAD-2010-0033018

PATIENT
  Sex: Male
  Weight: 67 kg

DRUGS (4)
  1. CAYSTON [Suspect]
     Indication: CYSTIC FIBROSIS
     Route: 055
     Dates: start: 20100101
  2. PULMOZYME [Concomitant]
     Indication: CYSTIC FIBROSIS
     Dates: start: 20060101
  3. ADVAIR DISKUS 100/50 [Concomitant]
     Indication: WHEEZING
     Dates: start: 20070101
  4. CREON MT24 [Concomitant]
     Indication: MALABSORPTION
     Dates: start: 20050101

REACTIONS (1)
  - CLOSTRIDIUM DIFFICILE COLITIS [None]
